FAERS Safety Report 12893444 (Version 1)
Quarter: 2016Q4

REPORT INFORMATION
  Report Type: Spontaneous
  Country: US (occurrence: US)
  Receive Date: 20161028
  Receipt Date: 20161028
  Transmission Date: 20170207
  Serious: No
  Sender: FDA-Public Use
  Company Number: US-DSJP-DSU-2016-109874

PATIENT
  Sex: Male
  Weight: 181.41 kg

DRUGS (3)
  1. AZOR [Suspect]
     Active Substance: AMLODIPINE BESYLATE\OLMESARTAN MEDOXOMIL
     Dosage: 5/40 MG, QD
     Route: 048
     Dates: start: 2015
  2. GENERIC CLARITIN [Suspect]
     Active Substance: LORATADINE
     Indication: HYPERSENSITIVITY
     Dosage: UNK
     Route: 048
  3. AZOR [Suspect]
     Active Substance: AMLODIPINE BESYLATE\OLMESARTAN MEDOXOMIL
     Indication: HYPERTENSION
     Dosage: 1 DF (5 OR 10/20 MG), QD
     Route: 048
     Dates: start: 2014, end: 2015

REACTIONS (8)
  - Hypersensitivity [Not Recovered/Not Resolved]
  - Unevaluable event [Unknown]
  - Treatment noncompliance [Not Recovered/Not Resolved]
  - Rash [Not Recovered/Not Resolved]
  - Inappropriate schedule of drug administration [None]
  - Dry skin [Not Recovered/Not Resolved]
  - Dermatitis allergic [None]
  - Hypertension [Unknown]
